FAERS Safety Report 15652508 (Version 1)
Quarter: 2018Q4

REPORT INFORMATION
  Report Type: Spontaneous
  Country: US (occurrence: US)
  Receive Date: 20181123
  Receipt Date: 20181123
  Transmission Date: 20190205
  Serious: No
  Sender: FDA-Public Use
  Company Number: US-FOUNDATIONCONSUMERHC-2018-US-015940

PATIENT
  Age: 24 Year
  Sex: Female
  Weight: 54.43 kg

DRUGS (1)
  1. PLAN B ONE-STEP [Suspect]
     Active Substance: LEVONORGESTREL
     Indication: POST COITAL CONTRACEPTION
     Dosage: 1.5 MG X 4 DOSES
     Route: 048
     Dates: start: 201806, end: 20180918

REACTIONS (6)
  - Abdominal pain [Not Recovered/Not Resolved]
  - Malaise [Recovered/Resolved]
  - Oligomenorrhoea [Recovered/Resolved]
  - Pyrexia [Recovered/Resolved]
  - Breast tenderness [Not Recovered/Not Resolved]
  - Mood altered [Not Recovered/Not Resolved]

NARRATIVE: CASE EVENT DATE: 201806
